FAERS Safety Report 7198543-3 (Version None)
Quarter: 2010Q4

REPORT INFORMATION
  Report Type: 
  Country: None (occurrence: None)
  Receive Date: 20101203
  Receipt Date: 20101130
  Transmission Date: 20110411
  Serious: Yes (Hospitalization, Other)
  Sender: FDA-Public Use
  Company Number: WAES 1011FRA00094

PATIENT
  Age: 39 Year
  Sex: Male

DRUGS (6)
  1. ISENTRESS [Suspect]
     Indication: HIV INFECTION
     Dosage: 800 MG/BID PO
     Route: 048
     Dates: start: 20101020
  2. RIFAMPIN [Suspect]
     Indication: TUBERCULOSIS
     Dosage: 600 MG/DAILY PO
     Route: 048
     Dates: start: 20101104
  3. LAMIVUDINE [Suspect]
     Indication: HIV INFECTION
     Dosage: 300 MG/DAILY PO
     Route: 048
     Dates: start: 20101020
  4. TAB TENOFOVIR [Suspect]
     Indication: HIV INFECTION
     Dosage: 300 MG/DAILY PO
     Route: 048
     Dates: start: 20101020
  5. ISONIAZID [Concomitant]
  6. SULFAMETHOXAZOLE AND TRIMETHOPRIM [Concomitant]

REACTIONS (1)
  - DEEP VEIN THROMBOSIS [None]
